FAERS Safety Report 8615572-0 (Version None)
Quarter: 2012Q3

REPORT INFORMATION
  Report Type: 
  Country: None (occurrence: None)
  Receive Date: 20120823
  Receipt Date: 20120821
  Transmission Date: 20120928
  Serious: Yes (Death, Hospitalization, Other)
  Sender: FDA-Public Use
  Company Number: PHHY2012DE015593

PATIENT
  Sex: Female
  Weight: 62 kg

DRUGS (9)
  1. PENTASA [Concomitant]
     Dosage: 1000 MG,
  2. OMEPRAZOLE [Concomitant]
     Dosage: 20 MG, 90 MG PER QUARTER
     Route: 048
  3. ZOLEDRONOC ACID [Suspect]
     Indication: BONE DISORDER
     Dosage: 4 MG, EVERY 4 WEEK
     Route: 042
     Dates: start: 20101119
  4. FASLODEX [Concomitant]
     Dosage: 500 MG, QMO
     Dates: start: 20110927
  5. FEMARA [Suspect]
     Dosage: 2.5 MG, UNK
     Route: 048
     Dates: start: 20101110, end: 20110901
  6. FENTANYL [Concomitant]
     Dosage: 25 UG, EVERY THIRD DAY
  7. LYRICA [Concomitant]
     Dosage: 150 MG, UNK
     Route: 048
  8. SUMATRIPTAN [Concomitant]
     Route: 048
  9. HYDROXYUREA [Concomitant]
     Indication: CELL DEATH
     Dates: start: 20120301

REACTIONS (20)
  - BACILLUS INFECTION [None]
  - METASTASES TO SKIN [None]
  - MOUTH ULCERATION [None]
  - KLEBSIELLA INFECTION [None]
  - OEDEMA PERIPHERAL [None]
  - ACUTE MYELOID LEUKAEMIA [None]
  - NEOPLASM MALIGNANT [None]
  - THROMBOCYTOPENIA [None]
  - SKIN HAEMORRHAGE [None]
  - PROTEUS TEST POSITIVE [None]
  - GENERAL PHYSICAL HEALTH DETERIORATION [None]
  - BONE NEOPLASM MALIGNANT [None]
  - SKIN INFECTION [None]
  - MUCOSAL HAEMORRHAGE [None]
  - STAPHYLOCOCCAL SKIN INFECTION [None]
  - MUCOSAL INFLAMMATION [None]
  - URINARY TRACT INFECTION [None]
  - HERPES ZOSTER [None]
  - PLEURAL EFFUSION [None]
  - NIGHT SWEATS [None]
